FAERS Safety Report 4838208-3 (Version None)
Quarter: 2005Q4

REPORT INFORMATION
  Report Type: 
  Country: None (occurrence: None)
  Receive Date: 20051123
  Receipt Date: 20050914
  Transmission Date: 20060501
  Serious: Yes (Hospitalization)
  Sender: FDA-Public Use
  Company Number: 2005BI017104

PATIENT
  Sex: Female

DRUGS (1)
  1. AVONEX [Suspect]
     Indication: MULTIPLE SCLEROSIS
     Dosage: 30 UG;QW;IM
     Route: 030
     Dates: start: 20020101

REACTIONS (3)
  - ORTHOPEDIC EXAMINATION ABNORMAL [None]
  - UNEVALUABLE EVENT [None]
  - VISUAL ACUITY REDUCED [None]
